FAERS Safety Report 5122784-X (Version None)
Quarter: 2006Q4

REPORT INFORMATION
  Report Type: 
  Country: None (occurrence: None)
  Receive Date: 20061004
  Receipt Date: 20060920
  Transmission Date: 20070319
  Serious: Yes (Other)
  Sender: FDA-Public Use
  Company Number: 2006R5-03854

PATIENT
  Age: 36 Year
  Sex: Male

DRUGS (1)
  1. CIPROFLOXACIN [Suspect]
     Indication: GASTRIC DISORDER
     Dosage: 2 MG/ML, SINGLE, INTRAVENOUS
     Route: 042
     Dates: start: 20060920, end: 20060920

REACTIONS (6)
  - ANXIETY [None]
  - BLOOD PRESSURE DECREASED [None]
  - HYPERHIDROSIS [None]
  - PALLOR [None]
  - TACHYCARDIA [None]
  - VEIN DISORDER [None]
